FAERS Safety Report 21899021 (Version 1)
Quarter: 2023Q1

REPORT INFORMATION
  Report Type: Spontaneous
  Country: DK (occurrence: DK)
  Receive Date: 20230123
  Receipt Date: 20230123
  Transmission Date: 20230417
  Serious: Yes (Other)
  Sender: FDA-Public Use
  Company Number: DK-BAXTER-2023BAX010263

PATIENT
  Sex: Female

DRUGS (79)
  1. PEMBROLIZUMAB [Suspect]
     Active Substance: PEMBROLIZUMAB
     Indication: Plasma cell myeloma
     Dosage: 16TH LINE THERAPY- MAY-2019 TO JUN-2019
  2. PEMBROLIZUMAB [Suspect]
     Active Substance: PEMBROLIZUMAB
     Dosage: 14TH LINE THERAPY- APR-2018 TO AUG-2018
  3. PEMBROLIZUMAB [Suspect]
     Active Substance: PEMBROLIZUMAB
     Dosage: 15TH LINE THERAPY- NOV-2018 TO MAY-2019
  4. ELOTUZUMAB [Suspect]
     Active Substance: ELOTUZUMAB
     Indication: Plasma cell myeloma
     Dosage: 20TH LINE THERAPY- JAN-2020 TO JAN-2020
  5. BELANTAMAB MAFODOTIN [Suspect]
     Active Substance: BELANTAMAB MAFODOTIN
     Indication: Plasma cell myeloma
     Dosage: 22ND LINE THERAPY- JUN-2020 TO OCT-2022
  6. PEGASYS [Suspect]
     Active Substance: PEGINTERFERON ALFA-2A
     Indication: Plasma cell myeloma
     Dosage: 19TH LINE THERAPY- DEC-2019 TO JAN-2020
  7. IXAZOMIB [Suspect]
     Active Substance: IXAZOMIB
     Indication: Plasma cell myeloma
     Dosage: 7TH LINE THERAPY- AUG-2017 TO SEP-2017
  8. AZACITIDINE [Suspect]
     Active Substance: AZACITIDINE
     Indication: Plasma cell myeloma
     Dosage: 18TH LINE THERAPY- AUG-2019 TO NOV-2019
  9. PANOBINOSTAT [Suspect]
     Active Substance: PANOBINOSTAT
     Indication: Plasma cell myeloma
     Dosage: 8TH LINE THERAPY- SEP-2017 TO SEP-2017
  10. PREDNISOLONE [Suspect]
     Active Substance: PREDNISOLONE
     Indication: Plasma cell myeloma
     Dosage: 17TH LINE THERAPY- JUN-2019 TO AUG-2019
  11. DEXAMETHASONE [Suspect]
     Active Substance: DEXAMETHASONE
     Indication: Plasma cell myeloma
     Dosage: 2ND LINE THERAPY- FEB-2016 TO FEB-2016
  12. DEXAMETHASONE [Suspect]
     Active Substance: DEXAMETHASONE
     Indication: Plasma cell myeloma
     Dosage: 9TH LINE THERAPY- SEP-2017 TO NOV-2017
  13. DEXAMETHASONE [Suspect]
     Active Substance: DEXAMETHASONE
     Dosage: 10TH LINE THERAPY- NOV-2017 TO NOV-2017
  14. DEXAMETHASONE [Suspect]
     Active Substance: DEXAMETHASONE
     Dosage: 8TH LINE THERAPY- SEP-2017 TO SEP-2017
  15. DEXAMETHASONE [Suspect]
     Active Substance: DEXAMETHASONE
     Dosage: 13TH LINE THERAPY- MAR-2018 TO APR-2018
  16. DEXAMETHASONE [Suspect]
     Active Substance: DEXAMETHASONE
     Dosage: 20TH LINE THERAPY- JAN-2020 TO JAN-2020
  17. DEXAMETHASONE [Suspect]
     Active Substance: DEXAMETHASONE
     Dosage: 5TH LINE THERAPY- APR-2017 TO JUL-2017
  18. DEXAMETHASONE [Suspect]
     Active Substance: DEXAMETHASONE
     Dosage: 16TH LINE THERAPY- MAY-2019 TO JUN-2019
  19. DEXAMETHASONE [Suspect]
     Active Substance: DEXAMETHASONE
     Dosage: 7TH LINE THERAPY- AUG-2017 TO SEP-2017
  20. DEXAMETHASONE [Suspect]
     Active Substance: DEXAMETHASONE
     Dosage: 11TH LINE THERAPY- NOV-2017 TO DEC-2017
  21. DEXAMETHASONE [Suspect]
     Active Substance: DEXAMETHASONE
     Dosage: 18TH LINE THERAPY- AUG-2019 TO NOV-2019
  22. DEXAMETHASONE [Suspect]
     Active Substance: DEXAMETHASONE
     Dosage: 14TH LINE THERAPY- APR-2018 TO AUG-2018
  23. DEXAMETHASONE [Suspect]
     Active Substance: DEXAMETHASONE
     Dosage: 4TH LINE THERAPY- SEP-2016 TO MAR-2017
  24. DEXAMETHASONE [Suspect]
     Active Substance: DEXAMETHASONE
     Dosage: 1ST LINE THERAPY- OCT-2014 TO FEB-2015, VGPR
  25. DEXAMETHASONE [Suspect]
     Active Substance: DEXAMETHASONE
     Dosage: 21ST LINE THERAPY- JAN-2020 TO JUN-2020
  26. DEXAMETHASONE [Suspect]
     Active Substance: DEXAMETHASONE
     Dosage: 15TH LINE THERAPY- NOV-2018 TO MAY-2019
  27. DEXAMETHASONE [Suspect]
     Active Substance: DEXAMETHASONE
     Dosage: 3RD LINE THERAPY- FEB-2016 TO SEP-2016
  28. DEXAMETHASONE [Suspect]
     Active Substance: DEXAMETHASONE
     Dosage: 12TH LINE THERAPY- DEC-2017 TO MAR-2018
  29. DEXAMETHASONE [Suspect]
     Active Substance: DEXAMETHASONE
     Dosage: 6TH LINE THERAPY- JUL-2017 TO AUG-2017
  30. CARFILZOMIB [Suspect]
     Active Substance: CARFILZOMIB
     Indication: Plasma cell myeloma
     Dosage: 13TH LINE THERAPY- MAR-2018 TO APR-2018
  31. CARFILZOMIB [Suspect]
     Active Substance: CARFILZOMIB
     Dosage: 11TH LINE THERAPY- NOV-2017 TO DEC-2017
  32. CARFILZOMIB [Suspect]
     Active Substance: CARFILZOMIB
     Dosage: 3RD LINE THERAPY- FEB-2016 TO SEP-2016
  33. CARFILZOMIB [Suspect]
     Active Substance: CARFILZOMIB
     Dosage: 12TH LINE THERAPY- DEC-2017 TO MAR-2018
  34. CARFILZOMIB [Suspect]
     Active Substance: CARFILZOMIB
     Dosage: 4TH LINE THERAPY- SEP-2016 TO MAR-2017
  35. CARFILZOMIB [Suspect]
     Active Substance: CARFILZOMIB
     Dosage: 14TH LINE THERAPY- APR-2018 TO AUG-2018
  36. CYCLOPHOSPHAMIDE [Suspect]
     Active Substance: CYCLOPHOSPHAMIDE
     Indication: Plasma cell myeloma
     Dosage: 21ST LINE THERAPY- JAN-2020 TO JUN-2020
  37. CYCLOPHOSPHAMIDE [Suspect]
     Active Substance: CYCLOPHOSPHAMIDE
     Indication: Plasma cell myeloma
     Dosage: 9TH LINE THERAPY- SEP-2017 TO NOV-2017
  38. CYCLOPHOSPHAMIDE [Suspect]
     Active Substance: CYCLOPHOSPHAMIDE
     Dosage: 17TH LINE THERAPY- JUN-2019 TO AUG-2019
  39. CYCLOPHOSPHAMIDE [Suspect]
     Active Substance: CYCLOPHOSPHAMIDE
     Dosage: 8TH LINE THERAPY- SEP-2017 TO SEP-2017
  40. CYCLOPHOSPHAMIDE [Suspect]
     Active Substance: CYCLOPHOSPHAMIDE
     Dosage: 1ST LINE THERAPY- OCT-2014 TO FEB-2015
  41. CYCLOPHOSPHAMIDE [Suspect]
     Active Substance: CYCLOPHOSPHAMIDE
     Dosage: 13TH LINE THERAPY- MAR-2018 TO APR-2018
  42. CYCLOPHOSPHAMIDE [Suspect]
     Active Substance: CYCLOPHOSPHAMIDE
     Dosage: 14TH LINE THERAPY- APR-2018 TO AUG-2018
  43. DOXORUBICIN [Suspect]
     Active Substance: DOXORUBICIN
     Indication: Plasma cell myeloma
     Dosage: 21ST LINE THERAPY- JAN-2020 TO JUN-2020
  44. VENETOCLAX [Suspect]
     Active Substance: VENETOCLAX
     Indication: Plasma cell myeloma
     Dosage: 11TH LINE THERAPY- NOV-2017 TO DEC-2017
  45. VENETOCLAX [Suspect]
     Active Substance: VENETOCLAX
     Dosage: 10TH LINE THERAPY- NOV-2017 TO NOV-2017
  46. LENALIDOMIDE [Suspect]
     Active Substance: LENALIDOMIDE
     Indication: Plasma cell myeloma
     Dosage: 16TH LINE THERAPY- MAY-2019 TO JUN-2019
  47. LENALIDOMIDE [Suspect]
     Active Substance: LENALIDOMIDE
     Indication: Plasma cell myeloma
     Dosage: 2ND LINE THERAPY- FEB-2016 TO FEB-2016
  48. LENALIDOMIDE [Suspect]
     Active Substance: LENALIDOMIDE
     Dosage: 14TH LINE THERAPY- APR-2018 TO AUG-2018
  49. LENALIDOMIDE [Suspect]
     Active Substance: LENALIDOMIDE
     Dosage: 15TH LINE THERAPY- NOV-2018 TO MAY-2019
  50. LENALIDOMIDE [Suspect]
     Active Substance: LENALIDOMIDE
     Dosage: 18TH LINE THERAPY- AUG-2019 TO NOV-2019
  51. ETOPOSIDE [Suspect]
     Active Substance: ETOPOSIDE
     Indication: Plasma cell myeloma
     Dosage: 17TH LINE THERAPY- JUN-2019 TO AUG-2019
  52. DARATUMUMAB [Suspect]
     Active Substance: DARATUMUMAB
     Indication: Plasma cell myeloma
     Dosage: 18TH LINE THERAPY- AUG-2019 TO NOV-2019
  53. DARATUMUMAB [Suspect]
     Active Substance: DARATUMUMAB
     Dosage: 12TH LINE THERAPY- DEC-2017 TO MAR-2018
  54. DARATUMUMAB [Suspect]
     Active Substance: DARATUMUMAB
     Dosage: 17TH LINE THERAPY- JUN-2019 TO AUG-2019
  55. DARATUMUMAB [Suspect]
     Active Substance: DARATUMUMAB
     Dosage: 15TH LINE THERAPY- NOV-2018 TO MAY-2019
  56. DARATUMUMAB [Suspect]
     Active Substance: DARATUMUMAB
     Dosage: 16TH LINE THERAPY- MAY-2019 TO JUN-2019
  57. DARATUMUMAB [Suspect]
     Active Substance: DARATUMUMAB
     Dosage: 11TH LINE THERAPY- NOV-2017 TO DEC-2017
  58. DARATUMUMAB [Suspect]
     Active Substance: DARATUMUMAB
     Dosage: 9TH LINE THERAPY- SEP-2017 TO NOV-2017
  59. DARATUMUMAB [Suspect]
     Active Substance: DARATUMUMAB
     Dosage: 13TH LINE THERAPY- MAR-2018 TO APR-2018
  60. DARATUMUMAB [Suspect]
     Active Substance: DARATUMUMAB
     Dosage: 8TH LINE THERAPY- SEP-2017 TO SEP-2017
  61. DARATUMUMAB [Suspect]
     Active Substance: DARATUMUMAB
     Dosage: 4TH LINE THERAPY- SEP-2016 TO MAR-2017
  62. DARATUMUMAB [Suspect]
     Active Substance: DARATUMUMAB
     Dosage: 5TH LINE THERAPY- APR-2017 TO JUL-2017
  63. DARATUMUMAB [Suspect]
     Active Substance: DARATUMUMAB
     Dosage: 19TH LINE THERAPY- DEC-2019 TO JAN-2020
  64. DARATUMUMAB [Suspect]
     Active Substance: DARATUMUMAB
     Dosage: 7TH LINE THERAPY- AUG-2017 TO SEP-2017
  65. DARATUMUMAB [Suspect]
     Active Substance: DARATUMUMAB
     Dosage: 6TH LINE THERAPY- JUL-2017 TO AUG-2017
  66. DARATUMUMAB [Suspect]
     Active Substance: DARATUMUMAB
     Dosage: 21ST LINE THERAPY- JAN-2020 TO JUN-2020
  67. VINCRISTINE [Suspect]
     Active Substance: VINCRISTINE
     Indication: Plasma cell myeloma
     Dosage: 8TH LINE THERAPY- SEP-2017 TO SEP-2017
  68. POMALIDOMIDE [Suspect]
     Active Substance: POMALIDOMIDE
     Indication: Plasma cell myeloma
     Dosage: 5TH LINE THERAPY- APR-2017 TO JUL-2017
  69. POMALIDOMIDE [Suspect]
     Active Substance: POMALIDOMIDE
     Dosage: 6TH LINE THERAPY- JUL-2017 TO AUG-2017
  70. POMALIDOMIDE [Suspect]
     Active Substance: POMALIDOMIDE
     Dosage: 3RD LINE THERAPY- FEB-2016 TO SEP-2016
  71. POMALIDOMIDE [Suspect]
     Active Substance: POMALIDOMIDE
     Dosage: 21ST LINE THERAPY- JAN-2020 TO JUN-2020
  72. POMALIDOMIDE [Suspect]
     Active Substance: POMALIDOMIDE
     Dosage: 20TH LINE THERAPY- JAN-2020 TO JAN-2020
  73. POMALIDOMIDE [Suspect]
     Active Substance: POMALIDOMIDE
     Dosage: 7TH LINE THERAPY- AUG-2017 TO SEP-2017
  74. POMALIDOMIDE [Suspect]
     Active Substance: POMALIDOMIDE
     Dosage: 4TH LINE THERAPY- SEP-2016 TO MAR-2017
  75. BORTEZOMIB [Suspect]
     Active Substance: BORTEZOMIB
     Indication: Plasma cell myeloma
     Dosage: 6TH LINE THERAPY- JUL-2017 TO AUG-2017
  76. BORTEZOMIB [Suspect]
     Active Substance: BORTEZOMIB
     Indication: Plasma cell myeloma
     Dosage: 1ST LINE THERAPY- OCT-2014 TO FEB-2015
  77. BORTEZOMIB [Suspect]
     Active Substance: BORTEZOMIB
     Dosage: 21ST LINE THERAPY- JAN-2020 TO JUN-2020
  78. BORTEZOMIB [Suspect]
     Active Substance: BORTEZOMIB
     Dosage: 16TH LINE THERAPY- MAY-2019 TO JUN-2019
  79. ACYCLOVIR [Concomitant]
     Active Substance: ACYCLOVIR
     Indication: Product used for unknown indication
     Dosage: UNK

REACTIONS (6)
  - Plasma cell myeloma [Recovered/Resolved]
  - Plasma cell myeloma [Recovered/Resolved]
  - Therapy partial responder [Unknown]
  - Disease progression [Unknown]
  - Central nervous system lesion [Unknown]
  - Bone disorder [Unknown]
